FAERS Safety Report 11695576 (Version 1)
Quarter: 2015Q4

REPORT INFORMATION
  Report Type: Report from Study
  Country: US (occurrence: US)
  Receive Date: 20151104
  Receipt Date: 20151104
  Transmission Date: 20160304
  Serious: No
  Sender: FDA-Public Use
  Company Number: US-AMGEN-USASL2015112814

PATIENT
  Age: 51 Year
  Sex: Female

DRUGS (1)
  1. ENBREL [Suspect]
     Active Substance: ETANERCEPT
     Indication: RHEUMATOID ARTHRITIS
     Dosage: UNK UNK, ONCE A WEEK
     Route: 065
     Dates: start: 20150915

REACTIONS (19)
  - Photophobia [Unknown]
  - Nasal congestion [Unknown]
  - Dysgeusia [Unknown]
  - Abdominal distension [Not Recovered/Not Resolved]
  - Dry skin [Unknown]
  - Thyroid disorder [Unknown]
  - Gastrointestinal disorder [Not Recovered/Not Resolved]
  - Pruritus [Unknown]
  - Rash macular [Unknown]
  - Eye pruritus [Unknown]
  - Injection site pruritus [Unknown]
  - Migraine [Unknown]
  - Injection site pain [Unknown]
  - Oral herpes [Unknown]
  - Nasal pruritus [Unknown]
  - Injection site erythema [Unknown]
  - Injection site bruising [Unknown]
  - Formication [Unknown]
  - Injection site swelling [Unknown]

NARRATIVE: CASE EVENT DATE: 2015
